FAERS Safety Report 15200272 (Version 6)
Quarter: 2018Q4

REPORT INFORMATION
  Report Type: Spontaneous
  Country: US (occurrence: US)
  Receive Date: 20180726
  Receipt Date: 20181231
  Transmission Date: 20190204
  Serious: Yes (Hospitalization, Other)
  Sender: FDA-Public Use
  Company Number: US-009507513-1807USA007005

PATIENT
  Age: 71 Year
  Sex: Female

DRUGS (14)
  1. RYTARY [Suspect]
     Active Substance: CARBIDOPA\LEVODOPA
     Dosage: UNK
     Route: 048
  2. AMANTADINE. [Suspect]
     Active Substance: AMANTADINE HYDROCHLORIDE
     Dosage: 68.5 MG, EVERY 48 HOURS AT BEDTIME
     Route: 048
     Dates: start: 2018, end: 2018
  3. AMANTADINE. [Suspect]
     Active Substance: AMANTADINE HYDROCHLORIDE
     Dosage: 68.5 MG
     Route: 048
     Dates: start: 20180705, end: 20180815
  4. METOPROLOL. [Concomitant]
     Active Substance: METOPROLOL
     Dosage: UNK
     Route: 048
  5. AMANTADINE. [Suspect]
     Active Substance: AMANTADINE HYDROCHLORIDE
     Dosage: 68.5 MGAS DIRECTED AT BEDTIME 2 DAYS ON AND 1 DAY OFF
     Route: 048
     Dates: start: 20180605, end: 20180627
  6. MONUROL [Concomitant]
     Active Substance: FOSFOMYCIN TROMETHAMINE
     Dosage: UNK
  7. AMANTADINE. [Suspect]
     Active Substance: AMANTADINE HYDROCHLORIDE
     Dosage: 68.5 MG, 1X/DAY AT BEDTIME
     Route: 048
     Dates: start: 20180921, end: 20181006
  8. ACIDOPHILUS [Concomitant]
     Active Substance: LACTOBACILLUS ACIDOPHILUS
     Dosage: UNK
     Route: 048
  9. ROBITUSSIN (GUAIFENESIN) [Concomitant]
     Active Substance: GUAIFENESIN
     Dosage: UNK
  10. SINEMET [Suspect]
     Active Substance: CARBIDOPA\LEVODOPA
     Dosage: UNK
     Route: 048
     Dates: start: 20180518
  11. AMANTADINE. [Suspect]
     Active Substance: AMANTADINE HYDROCHLORIDE
     Dosage: 68.5 MG, 1XDAY AT BEDTIME
     Route: 048
     Dates: start: 20180518, end: 2018
  12. AMLODIPINE [Concomitant]
     Active Substance: AMLODIPINE BESYLATE
     Dosage: UNK
     Route: 048
  13. CARBIDOPA (+) LEVODOPA [Concomitant]
     Active Substance: CARBIDOPA\LEVODOPA
     Dosage: UNK
     Route: 048
  14. TYLENOL [Concomitant]
     Active Substance: ACETAMINOPHEN
     Dosage: UNK
     Route: 048

REACTIONS (45)
  - Drug intolerance [Unknown]
  - Drug interaction [Not Recovered/Not Resolved]
  - Lip swelling [Unknown]
  - Cataract [Recovered/Resolved]
  - Blindness day [Unknown]
  - Musculoskeletal discomfort [Unknown]
  - Drug effect decreased [Not Recovered/Not Resolved]
  - Dystonia [Recovered/Resolved]
  - Agitation [Not Recovered/Not Resolved]
  - Cerebrovascular accident [Unknown]
  - Hypertonic bladder [Not Recovered/Not Resolved]
  - Restlessness [Not Recovered/Not Resolved]
  - Urinary tract infection [Recovering/Resolving]
  - Adverse event [Unknown]
  - Hallucinations, mixed [Recovering/Resolving]
  - Nausea [Not Recovered/Not Resolved]
  - Night sweats [Not Recovered/Not Resolved]
  - Oropharyngeal pain [Not Recovered/Not Resolved]
  - Dyskinesia [Unknown]
  - Adverse reaction [Unknown]
  - Retinal vascular occlusion [Unknown]
  - Vision blurred [Unknown]
  - Pyrexia [Recovering/Resolving]
  - Product dose omission [Unknown]
  - Parkinson^s disease [Unknown]
  - Blood pressure abnormal [Recovered/Resolved]
  - Speech disorder [Unknown]
  - Viral infection [Unknown]
  - Nasopharyngitis [Unknown]
  - Anxiety [Not Recovered/Not Resolved]
  - Lip disorder [Unknown]
  - Arthralgia [Unknown]
  - Musculoskeletal chest pain [Unknown]
  - Feeling abnormal [Not Recovered/Not Resolved]
  - Chest pain [Unknown]
  - Hyperhidrosis [Not Recovered/Not Resolved]
  - Poor quality sleep [Unknown]
  - Dry mouth [Not Recovered/Not Resolved]
  - Ophthalmic herpes simplex [Recovered/Resolved]
  - Pain [Unknown]
  - Blood pressure decreased [Unknown]
  - Fall [Unknown]
  - Dizziness [Unknown]
  - Paraesthesia [Unknown]
  - Malaise [Unknown]

NARRATIVE: CASE EVENT DATE: 20100610
